FAERS Safety Report 9105030 (Version 1)
Quarter: 2013Q1

REPORT INFORMATION
  Report Type: Spontaneous
  Country: US (occurrence: US)
  Receive Date: 20130220
  Receipt Date: 20130220
  Transmission Date: 20140127
  Serious: Yes (Other)
  Sender: FDA-Public Use
  Company Number: US-BAUSCH-BL-2013-001052

PATIENT
  Age: 81 Year
  Sex: Male

DRUGS (7)
  1. BESIVANCE [Suspect]
     Indication: PREOPERATIVE CARE
     Dosage: 1 DROP; THREE TIMES A DAY; RIGHT EYE
     Route: 047
     Dates: start: 20130127
  2. BESIVANCE [Suspect]
     Indication: POSTOPERATIVE CARE
  3. BESIVANCE [Suspect]
     Indication: OFF LABEL USE
  4. NEPAFENAC [Concomitant]
     Indication: PREOPERATIVE CARE
     Dosage: 1 DROP; TWICE A DAY; RIGHT EYE
     Route: 047
     Dates: start: 20130127
  5. NEPAFENAC [Concomitant]
     Indication: POSTOPERATIVE CARE
  6. DIFLUPREDNATE [Concomitant]
     Indication: PREOPERATIVE CARE
     Dosage: 1 DROP; TWICE A DAY; RIGHT EYE
     Route: 047
     Dates: start: 20130127
  7. DIFLUPREDNATE [Concomitant]
     Indication: POSTOPERATIVE CARE

REACTIONS (1)
  - Endophthalmitis [Unknown]
